FAERS Safety Report 12105328 (Version 2)
Quarter: 2016Q2

REPORT INFORMATION
  Report Type: Spontaneous
  Country: US (occurrence: US)
  Receive Date: 20160223
  Receipt Date: 20160502
  Transmission Date: 20160815
  Serious: Yes (Hospitalization)
  Sender: FDA-Public Use
  Company Number: US-PFIZER INC-2016046963

PATIENT
  Age: 55 Year
  Sex: Male

DRUGS (2)
  1. RAPAMUNE [Suspect]
     Active Substance: SIROLIMUS
     Indication: RENAL TRANSPLANT
     Dosage: 1 MG, 4X/DAY
     Dates: start: 2001
  2. RAPAMUNE [Suspect]
     Active Substance: SIROLIMUS
     Indication: RENAL TRANSPLANT
     Dosage: 1 MG/ML, 6 TIME DAILY
     Dates: start: 201508

REACTIONS (2)
  - Staphylococcal infection [Recovered/Resolved]
  - Drug level below therapeutic [Recovered/Resolved]
